FAERS Safety Report 15106190 (Version 1)
Quarter: 2018Q3

REPORT INFORMATION
  Report Type: Spontaneous
  Country: CA (occurrence: CA)
  Receive Date: 20180704
  Receipt Date: 20180704
  Transmission Date: 20181010
  Serious: Yes (Other)
  Sender: FDA-Public Use
  Company Number: CA-BAUSCH-BL-2018-018125

PATIENT
  Age: 46 Year
  Sex: Female

DRUGS (1)
  1. JUBLIA [Suspect]
     Active Substance: EFINACONAZOLE
     Indication: ONYCHOMYCOSIS
     Route: 061

REACTIONS (6)
  - Scab [Unknown]
  - Wound secretion [Unknown]
  - Dermatitis [Unknown]
  - Skin disorder [Unknown]
  - Skin warm [Unknown]
  - Erythema [Unknown]
